FAERS Safety Report 9213878 (Version 1)
Quarter: 2013Q2

REPORT INFORMATION
  Report Type: Spontaneous
  Country: GB (occurrence: GB)
  Receive Date: 20130405
  Receipt Date: 20130405
  Transmission Date: 20140414
  Serious: Yes (Hospitalization)
  Sender: FDA-Public Use
  Company Number: GB-PFIZER INC-HQ6358124JAN2001

PATIENT
  Age: 32 Year
  Sex: Male
  Weight: 75 kg

DRUGS (2)
  1. MOTRIN [Suspect]
     Dosage: UNKNOWN
     Route: 048
     Dates: start: 20010114, end: 20010114
  2. ZYBAN [Suspect]
     Indication: EX-TOBACCO USER
     Dosage: 9 GRAMS TAKEN
     Route: 048
     Dates: start: 20010114, end: 20010114

REACTIONS (7)
  - Intentional overdose [Recovering/Resolving]
  - Ataxia [Recovering/Resolving]
  - Agitation [Recovering/Resolving]
  - Confusional state [Recovering/Resolving]
  - Convulsion [Recovering/Resolving]
  - Hallucination [Recovering/Resolving]
  - Tremor [Recovering/Resolving]
